FAERS Safety Report 19020703 (Version 2)
Quarter: 2021Q3

REPORT INFORMATION
  Report Type: Report from Study
  Country: US (occurrence: US)
  Receive Date: 20210317
  Receipt Date: 20210827
  Transmission Date: 20211014
  Serious: Yes (Hospitalization, Other)
  Sender: FDA-Public Use
  Company Number: US-BRISTOL-MYERS SQUIBB COMPANY-BMS-2021-025361

PATIENT
  Age: 22 Year
  Sex: Female
  Weight: 75.92 kg

DRUGS (2)
  1. VE800 [Suspect]
     Active Substance: INVESTIGATIONAL PRODUCT
     Indication: METASTATIC MALIGNANT MELANOMA
     Dosage: 2000 MILLIGRAM, QD
     Route: 048
     Dates: start: 20200608, end: 20201010
  2. NIVOLUMAB [Suspect]
     Active Substance: NIVOLUMAB
     Indication: METASTATIC MALIGNANT MELANOMA
     Route: 065

REACTIONS (1)
  - Arthritis infective [Recovered/Resolved with Sequelae]

NARRATIVE: CASE EVENT DATE: 20201010
